FAERS Safety Report 6387084-9 (Version None)
Quarter: 2009Q4

REPORT INFORMATION
  Report Type: 
  Country: None (occurrence: None)
  Receive Date: 20091002
  Receipt Date: 20090925
  Transmission Date: 20100525
  Serious: Yes (Hospitalization)
  Sender: FDA-Public Use
  Company Number: US-AVENTIS-200918589US

PATIENT
  Sex: Male

DRUGS (2)
  1. LANTUS [Suspect]
     Dosage: DOSE: UNK
     Route: 058
  2. NOVOLOG [Suspect]
     Dosage: DOSE: UNK

REACTIONS (3)
  - BLOOD GLUCOSE DECREASED [None]
  - HOSPITALISATION [None]
  - HYPERHIDROSIS [None]
